FAERS Safety Report 8452882 (Version 5)
Quarter: 2014Q1

REPORT INFORMATION
  Report Type: Report from Study
  Country: FR (occurrence: FR)
  Receive Date: 20120312
  Receipt Date: 20140130
  Transmission Date: 20141002
  Serious: Yes (Death, Other)
  Sender: FDA-Public Use
  Company Number: FR-ASTELLAS-2012US002462

PATIENT
  Sex: Female

DRUGS (1)
  1. ERLOTINIB TABLET [Suspect]
     Indication: NON-SMALL CELL LUNG CANCER
     Dosage: UNK
     Route: 048

REACTIONS (2)
  - Malignant neoplasm progression [Fatal]
  - Asthenia [Not Recovered/Not Resolved]
